FAERS Safety Report 5165576-8 (Version None)
Quarter: 2006Q4

REPORT INFORMATION
  Report Type: 
  Country: None (occurrence: None)
  Receive Date: 20061206
  Receipt Date: 20010115
  Transmission Date: 20070319
  Serious: Yes (Hospitalization)
  Sender: FDA-Public Use
  Company Number: FR-GLAXOSMITHKLINE-B0096502A

PATIENT
  Age: 55 Year
  Sex: Male

DRUGS (6)
  1. EPIVIR [Suspect]
     Indication: HIV INFECTION
     Route: 048
     Dates: start: 19990501
  2. CRIXIVAN [Suspect]
     Indication: HIV INFECTION
     Route: 048
     Dates: start: 19990501, end: 20001001
  3. ZERIT [Suspect]
     Indication: HIV INFECTION
     Route: 048
     Dates: start: 19990501, end: 19990901
  4. ABACAVIR [Concomitant]
  5. EFAVIRENZ [Concomitant]
  6. NEVIRAPINE [Concomitant]

REACTIONS (4)
  - EMBOLISM [None]
  - NEUROPATHY [None]
  - PERIPHERAL ISCHAEMIA [None]
  - PHLEBITIS [None]
